FAERS Safety Report 7063320-0 (Version None)
Quarter: 2010Q4

REPORT INFORMATION
  Report Type: 
  Country: None (occurrence: None)
  Receive Date: 20101026
  Receipt Date: 20091027
  Transmission Date: 20110411
  Serious: No
  Sender: FDA-Public Use
  Company Number: US-ABBOTT-09P-163-0605981-00

PATIENT
  Sex: Female
  Weight: 66.284 kg

DRUGS (4)
  1. LUPRON DEPOT [Suspect]
     Indication: ENDOMETRIOSIS
     Dosage: MONTHLY
     Route: 030
     Dates: start: 20050101, end: 20050101
  2. LUPRON DEPOT [Suspect]
     Dosage: MONTHLY
     Route: 030
     Dates: start: 20090701
  3. ATENOLOL [Concomitant]
     Indication: HYPERTENSION
     Dosage: DAILY
     Route: 048
  4. LEXAPRO [Concomitant]
     Indication: PRODUCT USED FOR UNKNOWN INDICATION
     Dosage: DAILY
     Route: 048

REACTIONS (2)
  - ARTHRALGIA [None]
  - BONE PAIN [None]
